FAERS Safety Report 18734100 (Version 1)
Quarter: 2021Q1

REPORT INFORMATION
  Report Type: Spontaneous
  Country: DE (occurrence: DE)
  Receive Date: 20210113
  Receipt Date: 20210113
  Transmission Date: 20210419
  Serious: Yes (Other)
  Sender: FDA-Public Use
  Company Number: DE-TEVA-2021-DE-1868504

PATIENT
  Age: 16 Year
  Sex: Female

DRUGS (1)
  1. QUETIAPIN?RATIOPHARM 400 MG RETARDTABLETTEN [Suspect]
     Active Substance: QUETIAPINE
     Indication: PSYCHOTIC DISORDER
     Route: 048

REACTIONS (1)
  - Blood creatine phosphokinase increased [Unknown]
